FAERS Safety Report 7968702-8 (Version None)
Quarter: 2011Q4

REPORT INFORMATION
  Report Type: 
  Country: None (occurrence: None)
  Receive Date: 20111207
  Receipt Date: 20111122
  Transmission Date: 20120403
  Serious: Yes (Other)
  Sender: FDA-Public Use
  Company Number: PNIS20110012

PATIENT
  Age: 48 Year
  Sex: Female

DRUGS (2)
  1. CIPROFLOXACIN (CIPROFLOXACIN) (UNKNOWN) (CIPROFLOXACIN) [Concomitant]
  2. PREDNISOLONE [Suspect]
     Indication: SINUSITIS
     Dosage: 60 MG/DAY, ORAL
     Route: 048

REACTIONS (5)
  - CHORIORETINOPATHY [None]
  - RETINAL OEDEMA [None]
  - RETINAL EXUDATES [None]
  - MACULAR OEDEMA [None]
  - BLINDNESS UNILATERAL [None]
